FAERS Safety Report 5131259-3 (Version None)
Quarter: 2006Q4

REPORT INFORMATION
  Report Type: 
  Country: None (occurrence: None)
  Receive Date: 20061018
  Receipt Date: 20061018
  Transmission Date: 20070319
  Serious: Yes (Death)
  Sender: FDA-Public Use
  Company Number: None

PATIENT
  Sex: Male
  Weight: 81.4 kg

DRUGS (6)
  1. GLEEVEC [Suspect]
     Indication: ASTROCYTOMA
     Dosage: 400MG  PO  QD
     Route: 048
     Dates: start: 20060927, end: 20061024
  2. HYDROXYUREA [Suspect]
     Indication: ASTROCYTOMA
     Dosage: 500MG  PO  BID
     Route: 048
     Dates: start: 20060927, end: 20061024
  3. CONCERTA [Concomitant]
  4. LEXAPRO [Concomitant]
  5. PAMIDRONATE DISODIUM [Concomitant]
  6. ASPIRIN [Concomitant]

REACTIONS (1)
  - NEUROLOGICAL SYMPTOM [None]
